FAERS Safety Report 16508999 (Version 1)
Quarter: 2019Q3

REPORT INFORMATION
  Report Type: Spontaneous
  Country: GB (occurrence: GB)
  Receive Date: 20190702
  Receipt Date: 20190702
  Transmission Date: 20191004
  Serious: Yes (Life-Threatening, Other)
  Sender: FDA-Public Use
  Company Number: GB-DEXPHARM-20190459

PATIENT
  Age: 55 Year
  Sex: Female

DRUGS (8)
  1. AKIS [Suspect]
     Active Substance: DICLOFENAC SODIUM
     Indication: PAIN
     Route: 042
     Dates: start: 20190529
  2. HYDROXYCHLOROQUINE [Concomitant]
     Active Substance: HYDROXYCHLOROQUINE
  3. GABAPENTIN. [Concomitant]
     Active Substance: GABAPENTIN
  4. BUPIVACAINE. [Concomitant]
     Active Substance: BUPIVACAINE
     Indication: SPINAL ANAESTHESIA
  5. ORAMORPH [Concomitant]
     Active Substance: MORPHINE SULFATE
  6. ZOMORPH [Concomitant]
     Active Substance: MORPHINE SULFATE
  7. SERTRALINE [Concomitant]
     Active Substance: SERTRALINE HYDROCHLORIDE
  8. COCODAMOL [Concomitant]
     Active Substance: ACETAMINOPHEN\CODEINE PHOSPHATE

REACTIONS (2)
  - Hypotension [Recovered/Resolved]
  - Sinus bradycardia [Recovered/Resolved]

NARRATIVE: CASE EVENT DATE: 20190529
